FAERS Safety Report 9054670 (Version 3)
Quarter: 2013Q1

REPORT INFORMATION
  Report Type: Spontaneous
  Country: FI (occurrence: FI)
  Receive Date: 20130208
  Receipt Date: 20130227
  Transmission Date: 20140127
  Serious: Yes (Hospitalization, Other)
  Sender: FDA-Public Use
  Company Number: FI-JNJFOC-20130116365

PATIENT
  Age: 61 Year
  Sex: Male

DRUGS (15)
  1. STELARA [Suspect]
     Indication: PSORIASIS
     Route: 058
     Dates: start: 201302
  2. STELARA [Suspect]
     Indication: PSORIASIS
     Route: 058
     Dates: start: 201111, end: 201209
  3. LEVEMIR [Concomitant]
     Route: 065
  4. METFOREM [Concomitant]
     Route: 065
  5. AMARYL [Concomitant]
     Route: 065
  6. MAREVAN [Concomitant]
     Route: 065
  7. PHYSIOTENS [Concomitant]
     Route: 065
  8. BISOPROLOL [Concomitant]
     Route: 065
  9. COZAAR [Concomitant]
     Route: 065
  10. PRAVASTATIN [Concomitant]
     Route: 065
  11. PAMOL [Concomitant]
     Route: 065
  12. BEMETSON [Concomitant]
     Route: 065
  13. BURANA [Concomitant]
     Route: 065
  14. FURESIS [Concomitant]
     Route: 065
  15. TRAMAL [Concomitant]
     Route: 065

REACTIONS (2)
  - Diabetic foot infection [Recovering/Resolving]
  - Postoperative wound infection [Recovering/Resolving]
